FAERS Safety Report 8886065 (Version 1)
Quarter: 2012Q4

REPORT INFORMATION
  Report Type: 
  Country: PL (occurrence: PL)
  Receive Date: 20121105
  Receipt Date: 20121105
  Transmission Date: 20130627
  Serious: Yes (Hospitalization)
  Sender: FDA-Public Use
  Company Number: PL-BRISTOL-MYERS SQUIBB COMPANY-17023110

PATIENT
  Age: 37 Year
  Sex: Male
  Weight: 130 kg

DRUGS (2)
  1. ABILIFY TABS [Suspect]
     Indication: HALLUCINATION
     Dosage: abilify 7.5mg also taken, 1st dose 13-14Sep12 reintrodued on 4Oct12
1 quarter of Abilify 15mg tab
     Route: 048
     Dates: start: 20120913
  2. ABILIFY TABS [Suspect]
     Indication: DELUSION
     Dosage: abilify 7.5mg also taken, 1st dose 13-14Sep12 reintrodued on 4Oct12
1 quarter of Abilify 15mg tab
     Route: 048
     Dates: start: 20120913

REACTIONS (2)
  - Vertigo [Not Recovered/Not Resolved]
  - Wrong technique in drug usage process [Unknown]
